FAERS Safety Report 20589680 (Version 1)
Quarter: 2022Q1

REPORT INFORMATION
  Report Type: Spontaneous
  Country: US (occurrence: None)
  Receive Date: 20220311
  Receipt Date: 20220311
  Transmission Date: 20220423
  Serious: No
  Sender: FDA-Public Use
  Company Number: None

PATIENT
  Age: 64 Year
  Sex: Male
  Weight: 112.5 kg

DRUGS (17)
  1. ABIRATERONE ACETATE [Suspect]
     Active Substance: ABIRATERONE ACETATE
     Indication: Prostate cancer
     Dosage: FREQUENCY : DAILY;?
     Route: 048
     Dates: start: 20220305
  2. METFORMIN [Concomitant]
     Active Substance: METFORMIN HYDROCHLORIDE
  3. PANTOPRAZOLE [Concomitant]
     Active Substance: PANTOPRAZOLE
  4. LISINOPRIL [Concomitant]
     Active Substance: LISINOPRIL
  5. IBUPROFEN [Concomitant]
     Active Substance: IBUPROFEN
  6. PRAVASTATIN [Concomitant]
     Active Substance: PRAVASTATIN
  7. HYDROCODONE [Concomitant]
     Active Substance: HYDROCODONE
  8. PROBIOTICS NOS [Concomitant]
     Active Substance: PROBIOTICS NOS
  9. MUCINEX [Concomitant]
     Active Substance: GUAIFENESIN
  10. CALCIUM\VITAMIN D [Concomitant]
     Active Substance: CALCIUM\VITAMIN D
  11. VITAMIN C [Concomitant]
     Active Substance: ASCORBIC ACID
  12. ZINC [Concomitant]
     Active Substance: ZINC
  13. STOOL SOFTENER (DOCUSATE) [Concomitant]
     Active Substance: DOCUSATE
  14. MAGNESIUM [Concomitant]
     Active Substance: MAGNESIUM
  15. POTASSIUM [Concomitant]
     Active Substance: POTASSIUM
  16. GABAPENTIN [Concomitant]
     Active Substance: GABAPENTIN
  17. VESICARE [Concomitant]
     Active Substance: SOLIFENACIN SUCCINATE

REACTIONS (2)
  - Abdominal discomfort [None]
  - Hot flush [None]

NARRATIVE: CASE EVENT DATE: 20220311
